FAERS Safety Report 4845750-8 (Version None)
Quarter: 2005Q4

REPORT INFORMATION
  Report Type: 
  Country: None (occurrence: None)
  Receive Date: 20051201
  Receipt Date: 20051026
  Transmission Date: 20060501
  Serious: Yes (Other)
  Sender: FDA-Public Use
  Company Number: ENT 2005-0152

PATIENT
  Sex: Female

DRUGS (3)
  1. COMTAN [Suspect]
     Indication: PARKINSON'S DISEASE
     Dosage: 800 MG (200 MG, 4 IN 1 D) ORAL
     Route: 048
  2. CINAMET [Concomitant]
  3. PERGOLIDE [Concomitant]

REACTIONS (1)
  - HEPATIC ENZYME INCREASED [None]
